FAERS Safety Report 8604139-6 (Version None)
Quarter: 2012Q3

REPORT INFORMATION
  Report Type: 
  Country: None (occurrence: None)
  Receive Date: 20120820
  Receipt Date: 20120615
  Transmission Date: 20120928
  Serious: Yes (Hospitalization)
  Sender: FDA-Public Use
  Company Number: US-009507513-2012SP033523

PATIENT

DRUGS (7)
  1. INTEGRILIN [Suspect]
     Indication: CHEST PAIN
     Dosage: 180 ?G, UNK
     Route: 042
     Dates: start: 20120609, end: 20120609
  2. ASPIRIN [Concomitant]
     Indication: PRODUCT USED FOR UNKNOWN INDICATION
     Dates: start: 20120614
  3. HEPARIN [Concomitant]
     Indication: PRODUCT USED FOR UNKNOWN INDICATION
  4. INTEGRILIN [Suspect]
     Indication: MUSCULAR WEAKNESS
  5. LOPRESSOR [Concomitant]
     Indication: PRODUCT USED FOR UNKNOWN INDICATION
  6. SYNTHROID [Concomitant]
     Indication: PRODUCT USED FOR UNKNOWN INDICATION
  7. INTEGRILIN [Suspect]
     Indication: CORONARY ARTERY DISEASE
     Dosage: 180 ?G, UNK
     Route: 042
     Dates: start: 20120601

REACTIONS (1)
  - THROMBOCYTOPENIA [None]
